FAERS Safety Report 6263351-4 (Version None)
Quarter: 2009Q3

REPORT INFORMATION
  Report Type: 
  Country: None (occurrence: None)
  Receive Date: 20090710
  Receipt Date: 20080722
  Transmission Date: 20100115
  Serious: Yes (Other)
  Sender: FDA-Public Use
  Company Number: A0732901A

PATIENT
  Age: 60 Year
  Sex: Female

DRUGS (2)
  1. FLOVENT [Suspect]
     Indication: ASTHMA
     Dosage: 2PUFF PER DAY
     Route: 055
     Dates: start: 20010101
  2. DIABETES MEDICATION [Concomitant]

REACTIONS (4)
  - ASTHMA [None]
  - COUGH [None]
  - MEDIASTINAL DISORDER [None]
  - PRODUCT QUALITY ISSUE [None]
